FAERS Safety Report 6065003-2 (Version None)
Quarter: 2009Q1

REPORT INFORMATION
  Report Type: 
  Country: None (occurrence: None)
  Receive Date: 20090203
  Receipt Date: 20090203
  Transmission Date: 20090719
  Serious: No
  Sender: FDA-Public Use
  Company Number: None

PATIENT
  Age: 15 Year
  Sex: Female
  Weight: 41.7309 kg

DRUGS (2)
  1. KENALOG-40 [Suspect]
     Indication: HYPERSENSITIVITY
     Dosage: 40MG 1 X IM
     Route: 030
     Dates: start: 20080710, end: 20080710
  2. KENALOG-40 [Suspect]
     Indication: RASH PUSTULAR
     Dosage: 40MG 1 X IM
     Route: 030
     Dates: start: 20080710, end: 20080710

REACTIONS (1)
  - SKIN INDURATION [None]
